FAERS Safety Report 6957610-7 (Version None)
Quarter: 2010Q3

REPORT INFORMATION
  Report Type: 
  Country: None (occurrence: None)
  Receive Date: 20100831
  Receipt Date: 20100825
  Transmission Date: 20110219
  Serious: Yes (Death)
  Sender: FDA-Public Use
  Company Number: PHHO2010BE12919

PATIENT
  Sex: Male
  Weight: 80 kg

DRUGS (11)
  1. SANDIMMUNE [Suspect]
     Indication: TRANSPLANT
     Dosage: 250MG
     Route: 048
     Dates: start: 20100618, end: 20100618
  2. SANDIMMUNE [Suspect]
     Indication: TRANSPLANT
     Route: 042
  3. ANIDULAFUNGIN [Concomitant]
  4. VORICONAZOLE [Concomitant]
  5. VFEND [Concomitant]
  6. SODIUM CHLORIDE [Concomitant]
  7. CHLORHEXIDINE GLUCONATE [Concomitant]
  8. FOLAVIT [Concomitant]
  9. VOLUVEN [Concomitant]
  10. SOLU-MEDROL [Concomitant]
  11. ESCITALOPRAM [Concomitant]

REACTIONS (7)
  - ANISOCYTOSIS [None]
  - EPSTEIN-BARR VIRUS INFECTION [None]
  - LEUKOCYTOSIS [None]
  - LYMPHADENOPATHY [None]
  - LYMPHOMA [None]
  - NEUTROPHILIA [None]
  - NORMOCHROMIC NORMOCYTIC ANAEMIA [None]
